FAERS Safety Report 23813101 (Version 1)
Quarter: 2024Q2

REPORT INFORMATION
  Report Type: Spontaneous
  Country: US (occurrence: US)
  Receive Date: 20240503
  Receipt Date: 20240503
  Transmission Date: 20240715
  Serious: Yes (Hospitalization, Other)
  Sender: FDA-Public Use
  Company Number: US-AMNEAL PHARMACEUTICALS-2023-AMRX-03500

PATIENT
  Sex: Male
  Weight: 31.746 kg

DRUGS (1)
  1. VIGABATRIN [Suspect]
     Active Substance: VIGABATRIN
     Indication: Infantile spasms
     Dosage: MIX 3 PACKETS IN 30 ML OF WATER AND GIVE/TAKE 30 ML (1500 MG TOTAL) TWICE A DAY
     Route: 065

REACTIONS (2)
  - Epilepsy [Unknown]
  - Product dose omission issue [Unknown]
